FAERS Safety Report 15560160 (Version 1)
Quarter: 2018Q4

REPORT INFORMATION
  Report Type: Spontaneous
  Country: US (occurrence: US)
  Receive Date: 20181022
  Receipt Date: 20181022
  Transmission Date: 20190205
  Serious: Yes (Death)
  Sender: FDA-Public Use
  Company Number: None

PATIENT
  Age: 80 Year
  Sex: Female
  Weight: 66.68 kg

DRUGS (14)
  1. REPAGLINIDE. [Concomitant]
     Active Substance: REPAGLINIDE
  2. TRESIBA [Concomitant]
     Active Substance: INSULIN DEGLUDEC
  3. DICLOFENAC SODIUM. [Concomitant]
     Active Substance: DICLOFENAC SODIUM
  4. TRADJENTA [Concomitant]
     Active Substance: LINAGLIPTIN
  5. ARIMIDEX [Suspect]
     Active Substance: ANASTROZOLE
     Dates: end: 20180311
  6. GABAPENTIN. [Concomitant]
     Active Substance: GABAPENTIN
  7. VITAMIN D3 [Concomitant]
     Active Substance: CHOLECALCIFEROL
  8. CICLOPIROX. [Concomitant]
     Active Substance: CICLOPIROX
  9. NORCO [Concomitant]
     Active Substance: ACETAMINOPHEN\HYDROCODONE BITARTRATE
  10. OCUVITE SOFTGEL [Concomitant]
  11. LIDOCAINE OINTMENT [Concomitant]
     Active Substance: LIDOCAINE
  12. LISINOPRIL. [Concomitant]
     Active Substance: LISINOPRIL
  13. SYSTANE (HYPROMELLOSE 2910 (4000 MPA.S)) [Concomitant]
     Active Substance: HYPROMELLOSE 2910 (4000 MPA.S)
  14. ATORVASTATIN [Concomitant]
     Active Substance: ATORVASTATIN

REACTIONS (5)
  - Anaemia [None]
  - Acute myocardial infarction [None]
  - Contusion [None]
  - Acute kidney injury [None]
  - Hyperkalaemia [None]

NARRATIVE: CASE EVENT DATE: 20180907
